FAERS Safety Report 23791546 (Version 1)
Quarter: 2024Q2

REPORT INFORMATION
  Report Type: Report from Study
  Country: CA (occurrence: CA)
  Receive Date: 20240429
  Receipt Date: 20240429
  Transmission Date: 20240716
  Serious: Yes (Other)
  Sender: FDA-Public Use
  Company Number: CA-CELLTRION INC.-2024CA009400

PATIENT

DRUGS (17)
  1. RITUXIMAB [Suspect]
     Active Substance: RITUXIMAB
     Indication: Polymyositis
     Dosage: 1000 MILLIGRAM
     Route: 042
  2. RITUXIMAB [Suspect]
     Active Substance: RITUXIMAB
     Indication: Myositis
  3. BENADRYL [Suspect]
     Active Substance: DIPHENHYDRAMINE HYDROCHLORIDE
     Indication: Product used for unknown indication
     Route: 042
  4. MYCOPHENOLATE MOFETIL [Suspect]
     Active Substance: MYCOPHENOLATE MOFETIL
     Indication: Product used for unknown indication
     Route: 065
  5. ADVAIR HFA [Concomitant]
     Active Substance: FLUTICASONE PROPIONATE\SALMETEROL XINAFOATE
  6. ARNUITY ELLIPTA [Concomitant]
     Active Substance: FLUTICASONE FUROATE
  7. PINAVERIUM BROMIDE [Concomitant]
     Active Substance: PINAVERIUM BROMIDE
  8. FOLIC ACID [Concomitant]
     Active Substance: FOLIC ACID
  9. HYDROXYCHLOROQUINE [Concomitant]
     Active Substance: HYDROXYCHLOROQUINE
  10. LYRICA [Concomitant]
     Active Substance: PREGABALIN
  11. METHOTREXATE [Concomitant]
     Active Substance: METHOTREXATE
     Route: 048
  12. MONTELUKAST [Concomitant]
     Active Substance: MONTELUKAST SODIUM
  13. ORENCIA [Concomitant]
     Active Substance: ABATACEPT
     Route: 042
  14. PREDNISONE [Concomitant]
     Active Substance: PREDNISONE
  15. PREGABALIN [Concomitant]
     Active Substance: PREGABALIN
  16. RISEDRONATE SODIUM [Concomitant]
     Active Substance: RISEDRONATE SODIUM
  17. VENTOLIN [Concomitant]
     Active Substance: ALBUTEROL SULFATE

REACTIONS (13)
  - Fibromyalgia [Recovered/Resolved]
  - Skin cancer [Recovered/Resolved]
  - Raynaud^s phenomenon [Recovered/Resolved]
  - Somnolence [Recovered/Resolved]
  - Rheumatoid arthritis [Recovered/Resolved]
  - Systemic lupus erythematosus [Recovered/Resolved]
  - Polymyositis [Recovered/Resolved]
  - Lung disorder [Recovered/Resolved]
  - Migraine [Recovered/Resolved]
  - Infusion related reaction [Recovered/Resolved]
  - Drug hypersensitivity [Recovered/Resolved]
  - Off label use [Recovered/Resolved]
  - Intentional product use issue [Unknown]
